FAERS Safety Report 5451490-7 (Version None)
Quarter: 2007Q3

REPORT INFORMATION
  Report Type: 
  Country: None (occurrence: None)
  Receive Date: 20070913
  Receipt Date: 20070903
  Transmission Date: 20080115
  Serious: Yes (Life-Threatening, Hospitalization)
  Sender: FDA-Public Use
  Company Number: JP-TYCO HEALTHCARE/MALLINCKRODT-T200700850

PATIENT

DRUGS (6)
  1. OPTIRAY 300 [Suspect]
     Indication: COMPUTERISED TOMOGRAM
     Dosage: 95 ML, SINGLE
     Route: 042
     Dates: start: 20070724, end: 20070724
  2. VOGLIBOSE [Concomitant]
     Indication: DIABETES MELLITUS
     Dosage: .3 MG, TID
     Route: 048
  3. GLIMEPIRIDE [Concomitant]
     Indication: DIABETES MELLITUS
     Dosage: 1 MG, QD
     Route: 048
  4. ASPIRIN [Concomitant]
     Indication: MYOCARDIAL INFARCTION
     Dosage: 100 MG, QD
     Route: 048
  5. TICLOPIDINE HYDROCHLORIDE [Concomitant]
     Indication: MYOCARDIAL INFARCTION
     Dosage: 100 MG, BID
     Route: 048
  6. NICORANDIL [Concomitant]
     Indication: MYOCARDIAL INFARCTION
     Dosage: 5 MG, QID
     Route: 048

REACTIONS (6)
  - ANAPHYLACTIC SHOCK [None]
  - CARDIAC ARREST [None]
  - HYPOAESTHESIA [None]
  - OXYGEN SATURATION IMMEASURABLE [None]
  - PULSE ABSENT [None]
  - RESPIRATORY ARREST [None]
